FAERS Safety Report 10770782 (Version 1)
Quarter: 2015Q1

REPORT INFORMATION
  Report Type: Spontaneous
  Country: US (occurrence: None)
  Receive Date: 20150206
  Receipt Date: 20150206
  Transmission Date: 20150721
  Serious: No
  Sender: FDA-Public Use
  Company Number: HYP201305-000004

PATIENT
  Age: 33 Year
  Sex: Female
  Weight: 90.71 kg

DRUGS (2)
  1. RAVICTI [Suspect]
     Active Substance: GLYCEROL PHENYLBUTYRATE
     Indication: UREA CYCLE ENZYME DEFICIENCY
     Route: 048
     Dates: start: 2013
  2. L-CITRULLINE (L-CITRULLLINE) [Concomitant]

REACTIONS (1)
  - Oral discomfort [None]

NARRATIVE: CASE EVENT DATE: 201304
